FAERS Safety Report 8353740-6 (Version None)
Quarter: 2012Q2

REPORT INFORMATION
  Report Type: 
  Country: None (occurrence: None)
  Receive Date: 20120511
  Receipt Date: 20111007
  Transmission Date: 20120825
  Serious: Yes (Other)
  Sender: FDA-Public Use
  Company Number: US-GLAXOSMITHKLINE-A0948857A

PATIENT
  Age: 48 Year
  Sex: Female

DRUGS (4)
  1. DIVALPROEX SODIUM [Concomitant]
  2. TYKERB [Suspect]
     Indication: BREAST CANCER
     Dosage: 1250MG PER DAY
     Route: 048
     Dates: start: 20110510
  3. LAMOTRIGINE [Concomitant]
  4. DEXAMETHASONE [Concomitant]

REACTIONS (1)
  - HEPATIC ENZYME INCREASED [None]
